FAERS Safety Report 21437548 (Version 2)
Quarter: 2022Q4

REPORT INFORMATION
  Report Type: Report from Study
  Country: US (occurrence: US)
  Receive Date: 20221011
  Receipt Date: 20221013
  Transmission Date: 20230113
  Serious: No
  Sender: FDA-Public Use
  Company Number: US-ABBVIE-4143901

PATIENT
  Age: 40 Year
  Sex: Female

DRUGS (1)
  1. MAVYRET [Suspect]
     Active Substance: GLECAPREVIR\PIBRENTASVIR
     Indication: Hepatitis C
     Dosage: TIME INTERVAL: 0.33333333 DAYS: 100/40MG
     Route: 048
     Dates: start: 20220904

REACTIONS (2)
  - COVID-19 [Recovered/Resolved]
  - Menstruation irregular [Recovered/Resolved]

NARRATIVE: CASE EVENT DATE: 20220906
